FAERS Safety Report 7142859-3 (Version None)
Quarter: 2010Q4

REPORT INFORMATION
  Report Type: 
  Country: None (occurrence: None)
  Receive Date: 20101207
  Receipt Date: 20101124
  Transmission Date: 20110411
  Serious: Yes (Life-Threatening, Hospitalization)
  Sender: FDA-Public Use
  Company Number: DE-MYLANLABS-2009S1003679

PATIENT
  Age: 54 Year
  Sex: Male
  Weight: 78 kg

DRUGS (12)
  1. RAMIPRIL [Interacting]
     Indication: HYPERTENSION
     Route: 048
     Dates: start: 19900101
  2. FURORESE [Interacting]
     Indication: RENAL IMPAIRMENT
     Route: 048
     Dates: start: 20080301, end: 20080821
  3. HYDROCHLOROTHIAZIDE [Interacting]
     Indication: HYPERTENSION
     Route: 048
     Dates: start: 20080301, end: 20080821
  4. BISOPROLOL [Suspect]
     Indication: CORONARY ARTERY DISEASE
     Route: 048
     Dates: start: 19900101
  5. BEROTEC [Concomitant]
     Indication: CHRONIC OBSTRUCTIVE PULMONARY DISEASE
     Route: 055
  6. NEURONTIN [Concomitant]
     Indication: POLYNEUROPATHY ALCOHOLIC
     Route: 048
  7. PANTOZOL [Concomitant]
     Indication: PROPHYLAXIS AGAINST GASTROINTESTINAL ULCER
     Route: 048
  8. PREGABALIN [Concomitant]
     Indication: POLYNEUROPATHY ALCOHOLIC
     Route: 048
  9. SIFROL [Concomitant]
     Indication: POLYNEUROPATHY ALCOHOLIC
     Route: 048
  10. SIMVASTATIN [Concomitant]
     Indication: CORONARY ARTERY DISEASE
     Route: 048
  11. SPIRIVA [Concomitant]
     Indication: CHRONIC OBSTRUCTIVE PULMONARY DISEASE
     Route: 055
  12. FALITHROM [Concomitant]
     Indication: PULMONARY EMBOLISM
     Route: 048
     Dates: start: 20070401

REACTIONS (1)
  - DEHYDRATION [None]
